FAERS Safety Report 8326174-8 (Version None)
Quarter: 2012Q2

REPORT INFORMATION
  Report Type: 
  Country: None (occurrence: None)
  Receive Date: 20120501
  Receipt Date: 20120423
  Transmission Date: 20120825
  Serious: Yes (Life-Threatening, Other)
  Sender: FDA-Public Use
  Company Number: JP-BRISTOL-MYERS SQUIBB COMPANY-16534323

PATIENT
  Age: 70 Year
  Sex: Male

DRUGS (3)
  1. SITAGLIPTIN PHOSPHATE [Suspect]
     Route: 048
     Dates: start: 20120331, end: 20120403
  2. METFORMIN HCL [Suspect]
     Indication: DIABETES MELLITUS
     Dosage: 31MAR-03APR12,500MG,2 IN 1 D
     Route: 048
     Dates: end: 20120403
  3. AMARYL [Suspect]
     Dosage: 31MAR-03APR12,1MG
     Route: 048
     Dates: end: 20120403

REACTIONS (4)
  - METABOLIC ACIDOSIS [None]
  - BLOOD LACTIC ACID INCREASED [None]
  - ALTERED STATE OF CONSCIOUSNESS [None]
  - HYPOGLYCAEMIA [None]
